FAERS Safety Report 6110850-1 (Version None)
Quarter: 2009Q1

REPORT INFORMATION
  Report Type: 
  Country: None (occurrence: None)
  Receive Date: 20090309
  Receipt Date: 20090223
  Transmission Date: 20090719
  Serious: Yes (Life-Threatening)
  Sender: FDA-Public Use
  Company Number: KV200801332

PATIENT
  Age: 40 Year
  Sex: Female
  Weight: 49.9 kg

DRUGS (10)
  1. MORPHINE SULFATE [Suspect]
     Indication: PAIN
     Dosage: 60 MG TID ORAL
     Route: 048
     Dates: start: 19980101, end: 20080101
  2. VALIUM [Concomitant]
  3. TRILEPTAL [Concomitant]
  4. SEROQUEL [Concomitant]
  5. CYMBALTA [Concomitant]
  6. LEVOTHYROXINE SODIUM [Concomitant]
  7. HYDROCODONE (HYDROCODONE) [Concomitant]
  8. TRAZODONE HCL [Concomitant]
  9. XANAX [Concomitant]
  10. AMANTADINE HCL [Concomitant]

REACTIONS (5)
  - AGGRESSION [None]
  - LOSS OF CONSCIOUSNESS [None]
  - OVERDOSE [None]
  - PRODUCT QUALITY ISSUE [None]
  - RESPIRATORY DEPRESSION [None]
